FAERS Safety Report 8487694-9 (Version None)
Quarter: 2012Q3

REPORT INFORMATION
  Report Type: 
  Country: None (occurrence: None)
  Receive Date: 20120705
  Receipt Date: 20120625
  Transmission Date: 20120928
  Serious: Yes (Other)
  Sender: FDA-Public Use
  Company Number: CO-JNJFOC-20120612756

PATIENT
  Age: 68 Year
  Sex: Female

DRUGS (4)
  1. INFLAXEN [Concomitant]
     Route: 048
  2. NIFEDIPINE [Concomitant]
     Route: 048
  3. CALCIUM [Concomitant]
     Route: 048
  4. REMICADE [Suspect]
     Indication: RHEUMATOID ARTHRITIS
     Route: 042
     Dates: start: 20110627

REACTIONS (4)
  - DISCOMFORT [None]
  - PYREXIA [None]
  - INFUSION RELATED REACTION [None]
  - RESPIRATORY DISTRESS [None]
